FAERS Safety Report 4973476-9 (Version None)
Quarter: 2006Q2

REPORT INFORMATION
  Report Type: 
  Country: None (occurrence: None)
  Receive Date: 20060414
  Receipt Date: 20060405
  Transmission Date: 20061013
  Serious: Yes (Hospitalization)
  Sender: FDA-Public Use
  Company Number: FR-SANOFI-SYNTHELABO-A02200600927

PATIENT
  Age: 78 Year
  Sex: Male

DRUGS (8)
  1. KARDEGIC [Suspect]
     Indication: DRUG USE FOR UNKNOWN INDICATION
     Dosage: UNK
     Route: 048
     Dates: start: 20060116, end: 20060214
  2. XATRAL [Suspect]
     Route: 048
     Dates: start: 20060116
  3. MOPRAL [Suspect]
     Dosage: UNK
     Route: 048
     Dates: start: 20060116
  4. COVERSYL [Suspect]
     Dosage: UNK
     Route: 048
     Dates: start: 20060116
  5. EUPRESSYL [Concomitant]
     Dosage: 60 MG
     Route: 048
     Dates: start: 20060116
  6. AVANDAMET [Concomitant]
     Dosage: UNK
     Route: 048
     Dates: start: 20060116, end: 20060214
  7. ZANIDIP [Concomitant]
     Dosage: UNK
     Route: 048
     Dates: start: 20060116
  8. DIFFU K [Concomitant]
     Dosage: UNK
     Route: 065
     Dates: start: 20060116, end: 20060214

REACTIONS (2)
  - ANAEMIA [None]
  - NEUTROPENIA [None]
